FAERS Safety Report 9924706 (Version 6)
Quarter: 2015Q1

REPORT INFORMATION
  Report Type: Spontaneous
  Country: US (occurrence: US)
  Receive Date: 20140226
  Receipt Date: 20150306
  Transmission Date: 20150721
  Serious: Yes (Other)
  Sender: FDA-Public Use
  Company Number: US-AMGEN-USASP2014013268

PATIENT
  Age: 32 Year
  Sex: Female
  Weight: 61.22 kg

DRUGS (6)
  1. INFLUENZA VACCINE [Concomitant]
     Active Substance: INFLUENZA VIRUS VACCINE
     Dosage: UNK
  2. CHILDRENS TYLENOL [Concomitant]
     Active Substance: ACETAMINOPHEN
     Indication: TEETHING
     Dosage: 1.25 ML,AS NEEDED
     Route: 048
     Dates: start: 201404
  3. PRENATAL VITAMINS                  /02014401/ [Concomitant]
     Active Substance: VITAMINS
     Dosage: DAILY
     Route: 048
     Dates: end: 201402
  4. ENBREL [Suspect]
     Active Substance: ETANERCEPT
     Indication: RHEUMATOID ARTHRITIS
     Dosage: 50 MG, QWK
     Route: 065
     Dates: start: 201008
  5. HYLAND^S BABY TEETHING [Concomitant]
     Indication: TEETHING
     Dosage: UNK
     Route: 048
     Dates: start: 201404
  6. PREDNISONE. [Concomitant]
     Active Substance: PREDNISONE
     Indication: RHEUMATOID ARTHRITIS
     Dosage: 5 MG,DAILY
     Route: 048
     Dates: start: 201206, end: 20131218

REACTIONS (1)
  - Placental hypertrophy [Recovered/Resolved]

NARRATIVE: CASE EVENT DATE: 2013
